FAERS Safety Report 21371479 (Version 2)
Quarter: 2023Q1

REPORT INFORMATION
  Report Type: Spontaneous
  Country: FR (occurrence: FR)
  Receive Date: 20220923
  Receipt Date: 20230120
  Transmission Date: 20230418
  Serious: Yes (Hospitalization, Other)
  Sender: FDA-Public Use
  Company Number: FR-Oracle-CF20140180

PATIENT
  Sex: Male
  Weight: 73 kg

DRUGS (35)
  1. VANCOMYCIN [Suspect]
     Active Substance: VANCOMYCIN
     Indication: Product used for unknown indication
     Dosage: UNK
     Route: 042
     Dates: start: 20121003, end: 20121003
  2. SUFENTANIL [Suspect]
     Active Substance: SUFENTANIL
     Indication: Anaesthesia
     Dosage: UNK
     Route: 042
     Dates: start: 20121003, end: 20121003
  3. PROPOFOL LIPURO [Suspect]
     Active Substance: PROPOFOL
     Indication: Anaesthesia
     Dosage: UNK
     Route: 042
     Dates: start: 20121003, end: 20121003
  4. NIMBEX [Suspect]
     Active Substance: CISATRACURIUM BESYLATE
     Indication: Anaesthesia
     Dosage: UNK
     Route: 042
     Dates: start: 20121003, end: 20121003
  5. ATARAX [Suspect]
     Active Substance: HYDROXYZINE HYDROCHLORIDE
     Indication: Anxiety
     Dosage: 50MG + 25MG, 50 MG ONCE AND 25 MG ONCE
     Route: 048
     Dates: start: 20121002, end: 20121003
  6. HEPARIN SODIUM [Suspect]
     Active Substance: HEPARIN SODIUM
     Indication: Extracorporeal circulation
     Dosage: 16000 INTERNATIONAL UNIT
     Route: 042
     Dates: start: 20121003
  7. HEPARIN SODIUM [Suspect]
     Active Substance: HEPARIN SODIUM
     Dosage: 4000 INTERNATIONAL UNIT
     Route: 042
     Dates: start: 20121003
  8. HEPARIN SODIUM [Suspect]
     Active Substance: HEPARIN SODIUM
     Dosage: 16000 + 4000 (BOLUS)
     Route: 042
     Dates: start: 20121003, end: 20121003
  9. KARDEGIC [Suspect]
     Active Substance: ASPIRIN DL-LYSINE
     Indication: Cardiovascular event prophylaxis
     Dosage: 1 ENZYME UNIT
     Route: 048
  10. KARDEGIC [Suspect]
     Active Substance: ASPIRIN DL-LYSINE
     Dosage: 75 MILLIGRAM
     Route: 065
  11. KARDEGIC [Suspect]
     Active Substance: ASPIRIN DL-LYSINE
     Dosage: 1 DOSAGE FORM, QD
     Route: 065
  12. GINKGO [Suspect]
     Active Substance: GINKGO
     Indication: Cognitive disorder
     Dosage: 2 DOSAGE FORM
     Route: 048
     Dates: end: 20121003
  13. GINKGO [Suspect]
     Active Substance: GINKGO
     Dosage: 40 MILLIGRAM, BID
     Route: 065
     Dates: end: 20121003
  14. KETAMINE [Suspect]
     Active Substance: KETAMINE
     Indication: Anaesthesia
     Dosage: UNK
     Route: 042
     Dates: start: 20121003, end: 20121003
  15. ETOMIDATE [Suspect]
     Active Substance: ETOMIDATE
     Indication: Induction and maintenance of anaesthesia
     Dosage: UNK
     Route: 042
     Dates: start: 20121003, end: 20121003
  16. ETOMIDATE [Suspect]
     Active Substance: ETOMIDATE
     Indication: Anaesthesia
  17. PROTAMINE [Suspect]
     Active Substance: PROTAMINE
     Indication: Product used for unknown indication
     Dosage: UNK
     Route: 042
     Dates: start: 20121003, end: 20121003
  18. TRANEXAMIC ACID [Suspect]
     Active Substance: TRANEXAMIC ACID
     Indication: Haemorrhage prophylaxis
     Dosage: UNK
     Route: 042
     Dates: start: 20121003, end: 20121003
  19. AVODART [Concomitant]
     Active Substance: DUTASTERIDE
     Indication: Product used for unknown indication
     Dosage: 1 DOSAGE FORM, QD
     Route: 065
     Dates: end: 20121001
  20. CRESTOR [Concomitant]
     Active Substance: ROSUVASTATIN CALCIUM
     Indication: Dyslipidaemia
     Dosage: 5 MILLIGRAM, QD
     Route: 065
     Dates: start: 20121001
  21. CRESTOR [Concomitant]
     Active Substance: ROSUVASTATIN CALCIUM
     Dosage: 1 DOSAGE FORM, QD
     Route: 065
     Dates: end: 20121001
  22. ESOMEPRAZOLE [Concomitant]
     Active Substance: ESOMEPRAZOLE
     Indication: Gastroduodenal ulcer
     Dosage: 40 MILLIGRAM, QD, 20 MG + 40 MG
     Route: 065
     Dates: start: 20121003
  23. ZOLPIDEM TARTRATE [Concomitant]
     Active Substance: ZOLPIDEM TARTRATE
     Indication: Insomnia
     Dosage: 10 MILLIGRAM, QD
     Route: 065
  24. ZOLPIDEM TARTRATE [Concomitant]
     Active Substance: ZOLPIDEM TARTRATE
     Dosage: 1 DOSAGE FORM, QD
     Route: 065
  25. CORDARONE [Concomitant]
     Active Substance: AMIODARONE HYDROCHLORIDE
     Dosage: 200 MILLIGRAM, QD
     Route: 065
  26. ESCODARONE [Concomitant]
     Indication: Product used for unknown indication
     Dosage: 200 MILLIGRAM, QD
     Route: 065
  27. LERCANIDIPINE HYDROCHLORIDE [Concomitant]
     Active Substance: LERCANIDIPINE HYDROCHLORIDE
     Route: 065
  28. CLINDAMYCIN PHOSPHATE [Concomitant]
     Active Substance: CLINDAMYCIN PHOSPHATE
     Route: 065
     Dates: end: 20121001
  29. CLINDAMYCIN HYDROCHLORIDE [Concomitant]
     Active Substance: CLINDAMYCIN HYDROCHLORIDE
     Dosage: UNK
     Route: 065
     Dates: end: 20121001
  30. CLINDAMYCIN PALMITATE HYDROCHLORIDE [Concomitant]
     Active Substance: CLINDAMYCIN PALMITATE HYDROCHLORIDE
     Dosage: UNK
     Route: 065
     Dates: end: 20121001
  31. FLUINDIONE [Concomitant]
     Active Substance: FLUINDIONE
     Dosage: 20 MILLIGRAM
     Route: 065
     Dates: end: 20120925
  32. OMEPRAZOLE [Concomitant]
     Active Substance: OMEPRAZOLE
     Dosage: UNK
     Route: 065
     Dates: start: 20121003, end: 20121003
  33. EPHEDRINE HYDROCHLORIDE [Concomitant]
     Active Substance: EPHEDRINE HYDROCHLORIDE
     Dosage: UNK
     Route: 065
     Dates: start: 20121003
  34. NOREPINEPHRINE [Concomitant]
     Active Substance: NOREPINEPHRINE
     Dosage: UNK
     Route: 065
     Dates: start: 20121003
  35. HEMOSTATIC [Concomitant]
     Dosage: UNK
     Route: 065

REACTIONS (2)
  - Post procedural haemorrhage [Recovered/Resolved]
  - Haemorrhage [Recovered/Resolved]

NARRATIVE: CASE EVENT DATE: 20121003
